FAERS Safety Report 12423147 (Version 1)
Quarter: 2016Q2

REPORT INFORMATION
  Report Type: Spontaneous
  Country: US (occurrence: None)
  Receive Date: 20160531
  Receipt Date: 20160531
  Transmission Date: 20160815
  Serious: Yes (Disabling)
  Sender: FDA-Public Use
  Company Number: None

PATIENT
  Age: 46 Year
  Sex: Female
  Weight: 113.4 kg

DRUGS (9)
  1. LITHIUM. [Suspect]
     Active Substance: LITHIUM
     Indication: MYALGIA
  2. ALIVE [Concomitant]
  3. HYDROCODONE BITARTRATE AND ACETAMINOPHEN [Suspect]
     Active Substance: ACETAMINOPHEN\HYDROCODONE BITARTRATE
  4. E [Concomitant]
  5. LITHIUM. [Suspect]
     Active Substance: LITHIUM
     Indication: PAIN
  6. FIBER [Concomitant]
     Active Substance: PSYLLIUM HUSK
  7. GABAPENTIN 1800 MG [Suspect]
     Active Substance: GABAPENTIN
  8. GINKGO BIOLBLA [Concomitant]
  9. GLUCOSOMINE CHONDROTION [Concomitant]

REACTIONS (2)
  - Mental disorder [None]
  - Coordination abnormal [None]

NARRATIVE: CASE EVENT DATE: 20130707
